FAERS Safety Report 9399839 (Version 1)
Quarter: 2013Q3

REPORT INFORMATION
  Report Type: Report from Study
  Country: BR (occurrence: BR)
  Receive Date: 20130715
  Receipt Date: 20130715
  Transmission Date: 20140515
  Serious: Yes (Hospitalization, Other)
  Sender: FDA-Public Use
  Company Number: PHHY2013BR074477

PATIENT
  Sex: Female

DRUGS (3)
  1. EXELON PATCH [Suspect]
     Indication: CEREBROVASCULAR ACCIDENT
     Dosage: 9.5 MG, DAILY, AT NIGHT
     Route: 062
     Dates: start: 201212
  2. EXELON PATCH [Suspect]
     Indication: ISCHAEMIA
  3. EXELON PATCH [Suspect]
     Indication: OFF LABEL USE

REACTIONS (7)
  - Infection [Recovered/Resolved]
  - Hypersomnia [Not Recovered/Not Resolved]
  - Aphasia [Not Recovered/Not Resolved]
  - Daydreaming [Unknown]
  - Blister [Not Recovered/Not Resolved]
  - Application site erythema [Not Recovered/Not Resolved]
  - Drug ineffective [Unknown]
